FAERS Safety Report 8996349 (Version 2)
Quarter: 2013Q1

REPORT INFORMATION
  Report Type: Spontaneous
  Country: TW (occurrence: TW)
  Receive Date: 20130104
  Receipt Date: 20130108
  Transmission Date: 20140127
  Serious: Yes (Death, Hospitalization, Other)
  Sender: FDA-Public Use
  Company Number: TW-AMGEN-TWNSP2012084291

PATIENT
  Age: 79 Year
  Sex: Female

DRUGS (5)
  1. ENBREL [Suspect]
     Indication: RHEUMATOID ARTHRITIS
     Dosage: 25 MG, 2X/WEEK
     Route: 058
     Dates: start: 200906, end: 20121120
  2. LEFLUNOMIDE [Concomitant]
     Indication: RHEUMATOID ARTHRITIS
     Dosage: 100 MG, 1X/DAY
  3. PREDNISOLONE [Concomitant]
     Indication: RHEUMATOID ARTHRITIS
     Dosage: 5 MG, 1X/DAY
  4. MAGNESIUM OXIDE [Concomitant]
     Dosage: 2 TABLETS, 1X/DAY
  5. HYDROXYCHLOROQUINE [Concomitant]
     Indication: RHEUMATOID ARTHRITIS
     Dosage: 200 MG, 1X/DAY

REACTIONS (10)
  - Oral candidiasis [Fatal]
  - Oesophageal candidiasis [Fatal]
  - Decreased immune responsiveness [Unknown]
  - Abdominal infection [Unknown]
  - Muscular weakness [Not Recovered/Not Resolved]
  - Duodenal ulcer perforation [Unknown]
  - Polyneuropathy [Unknown]
  - Herpes simplex encephalitis [Fatal]
  - Septic shock [Unknown]
  - Abdominal abscess [Unknown]
